FAERS Safety Report 12040215 (Version 1)
Quarter: 2016Q1

REPORT INFORMATION
  Report Type: Spontaneous
  Country: None (occurrence: US)
  Receive Date: 20160208
  Receipt Date: 20160208
  Transmission Date: 20160526
  Serious: No
  Sender: FDA-Public Use
  Company Number: US-APOTEX-2015AP009523

PATIENT
  Sex: Female

DRUGS (4)
  1. CELEXA [Suspect]
     Active Substance: CITALOPRAM HYDROBROMIDE
     Indication: TRICHOTILLOMANIA
     Route: 065
  2. WELLBUTRIN [Suspect]
     Active Substance: BUPROPION HYDROCHLORIDE
     Indication: TRICHOTILLOMANIA
     Route: 065
  3. ZOLOFT [Suspect]
     Active Substance: SERTRALINE HYDROCHLORIDE
     Indication: TRICHOTILLOMANIA
     Route: 065
  4. PAXIL [Suspect]
     Active Substance: PAROXETINE HYDROCHLORIDE
     Indication: TRICHOTILLOMANIA
     Route: 065

REACTIONS (9)
  - Irritability [Unknown]
  - Condition aggravated [Unknown]
  - Feeling abnormal [Unknown]
  - Weight increased [Unknown]
  - Mood altered [Unknown]
  - Drug ineffective [Unknown]
  - Increased appetite [Unknown]
  - Acne [Unknown]
  - Apathy [Unknown]
